FAERS Safety Report 24771813 (Version 2)
Quarter: 2025Q3

REPORT INFORMATION
  Report Type: Report from Study
  Country: CA (occurrence: CA)
  Receive Date: 20241224
  Receipt Date: 20250810
  Transmission Date: 20251021
  Serious: Yes (Other)
  Sender: ALEXION PHARMACEUTICALS
  Company Number: CA-AstraZeneca-CH-00770265A

PATIENT
  Sex: Male

DRUGS (5)
  1. BENRALIZUMAB [Suspect]
     Active Substance: BENRALIZUMAB
     Indication: Asthma
     Dates: start: 20190430, end: 20241024
  2. BRICANYL [Concomitant]
     Active Substance: TERBUTALINE SULFATE
     Route: 065
  3. GLYCOPYRROLATE [Concomitant]
     Active Substance: GLYCOPYRROLATE
     Route: 065
  4. ZENHALE [Concomitant]
     Active Substance: FORMOTEROL FUMARATE\MOMETASONE FUROATE
     Route: 065
  5. MONTELUKAST [Concomitant]
     Active Substance: MONTELUKAST
     Route: 065

REACTIONS (1)
  - Terminal state [Unknown]
